FAERS Safety Report 15932777 (Version 3)
Quarter: 2019Q1

REPORT INFORMATION
  Report Type: Spontaneous
  Country: JP (occurrence: JP)
  Receive Date: 20190207
  Receipt Date: 20190210
  Transmission Date: 20190417
  Serious: Yes (Death)
  Sender: FDA-Public Use
  Company Number: PHHY2018JP200976

PATIENT
  Age: 68 Year
  Sex: Female

DRUGS (4)
  1. MAXIPIME [Concomitant]
     Active Substance: CEFEPIME HYDROCHLORIDE
     Indication: FEBRILE NEUTROPENIA
     Dosage: 4 G, QD (IN 2 DIVIDED DOSES)
     Route: 065
     Dates: start: 20170926, end: 20171002
  2. FILGRASTIM [Suspect]
     Active Substance: FILGRASTIM
     Indication: NEUTROPENIA
     Dosage: 75 UG, QD
     Route: 058
     Dates: start: 20170928, end: 20171001
  3. HYCAMTIN [Suspect]
     Active Substance: TOPOTECAN HYDROCHLORIDE
     Indication: OVARIAN CANCER RECURRENT
     Dosage: 1.1 MG, QD
     Route: 065
     Dates: end: 20170918
  4. SULPYRINE [Concomitant]
     Indication: PYREXIA
     Dosage: 750 MG (250-750 MG), QD (IN 1 DOSE OR 2-3 DIVIDED DOSES)
     Route: 065
     Dates: start: 20170927, end: 20171002

REACTIONS (1)
  - Lung disorder [Fatal]
